FAERS Safety Report 16245355 (Version 2)
Quarter: 2019Q2

REPORT INFORMATION
  Report Type: Spontaneous
  Country: JP (occurrence: JP)
  Receive Date: 20190426
  Receipt Date: 20190603
  Transmission Date: 20190711
  Serious: Yes (Hospitalization)
  Sender: FDA-Public Use
  Company Number: JP-CELGENEUS-JPN-20190408678

PATIENT
  Age: 7 Decade
  Sex: Male

DRUGS (2)
  1. EDOXABAN TOSILATE [Concomitant]
     Active Substance: EDOXABAN TOSYLATE
     Indication: ATRIAL FIBRILLATION
     Route: 048
  2. ABRAXANE [Suspect]
     Active Substance: PACLITAXEL
     Indication: LUNG ADENOCARCINOMA
     Route: 041

REACTIONS (3)
  - Renal impairment [Recovering/Resolving]
  - Melaena [Recovering/Resolving]
  - Blood bilirubin increased [Recovering/Resolving]
